FAERS Safety Report 23707397 (Version 1)
Quarter: 2024Q2

REPORT INFORMATION
  Report Type: Spontaneous
  Country: US (occurrence: None)
  Receive Date: 20240404
  Receipt Date: 20240404
  Transmission Date: 20240715
  Serious: Yes (Hospitalization)
  Sender: FDA-Public Use
  Company Number: None

PATIENT
  Sex: Female

DRUGS (1)
  1. RETEVMO [Suspect]
     Active Substance: SELPERCATINIB
     Indication: Lung carcinoma cell type unspecified stage 0
     Dosage: 160MG BID ORAL?
     Route: 048
     Dates: start: 202306

REACTIONS (2)
  - Jaundice [None]
  - Therapy interrupted [None]
